FAERS Safety Report 17068430 (Version 1)
Quarter: 2019Q4

REPORT INFORMATION
  Report Type: Spontaneous
  Country: GB (occurrence: GB)
  Receive Date: 20191123
  Receipt Date: 20191123
  Transmission Date: 20200122
  Serious: Yes (Other)
  Sender: FDA-Public Use
  Company Number: GB-ACCORD-162190

PATIENT
  Age: 36 Year
  Sex: Female
  Weight: 48 kg

DRUGS (13)
  1. CYANOCOBALAMIN. [Suspect]
     Active Substance: CYANOCOBALAMIN
     Indication: PRODUCT USED FOR UNKNOWN INDICATION
     Dosage: 1 MG/1 ML
     Dates: start: 20191021
  2. TACROLIMUS. [Concomitant]
     Active Substance: TACROLIMUS
     Dosage: TO BE APPLIED ONCE A DAY FOR 4 WEEKS AND THEN R...
     Dates: start: 20181023
  3. CLOBETASOL [Concomitant]
     Active Substance: CLOBETASOL
     Dosage: TO BE APPLIED DAILY FOR 2 WEEKS, THEN ALTERNATE...
     Dates: start: 20181023
  4. SERTRALINE [Concomitant]
     Active Substance: SERTRALINE HYDROCHLORIDE
     Indication: AFFECTIVE DISORDER
     Dates: start: 20190925
  5. FEXOFENADINE [Concomitant]
     Active Substance: FEXOFENADINE HYDROCHLORIDE
     Dates: start: 20180116
  6. PROPRANOLOL [Concomitant]
     Active Substance: PROPRANOLOL HYDROCHLORIDE
     Indication: ANXIETY
     Dates: start: 20180517
  7. OMEPRAZOLE. [Concomitant]
     Active Substance: OMEPRAZOLE
     Dosage: WHEN ON CITALOPRAM, AND IBUPROFEN
     Dates: start: 20181120, end: 20191021
  8. BACLOFEN. [Concomitant]
     Active Substance: BACLOFEN
     Dates: start: 20190802
  9. FOLIC ACID. [Concomitant]
     Active Substance: FOLIC ACID
     Indication: BLOOD FOLATE DECREASED
     Dates: start: 20170707
  10. WAVE PHARMA DULOXETINE [Concomitant]
     Dates: start: 20190802, end: 20190830
  11. HYDROXOCOBALAMIN [Suspect]
     Active Substance: HYDROXOCOBALAMIN
     Indication: GASTRIC BYPASS
     Dosage: 1 MG/1 ML
  12. PREGABALIN. [Concomitant]
     Active Substance: PREGABALIN
     Dates: start: 20190123
  13. CITALOPRAM [Concomitant]
     Active Substance: CITALOPRAM HYDROBROMIDE
     Dates: start: 20181017

REACTIONS (6)
  - Abdominal pain lower [Recovered/Resolved]
  - Pruritus [Recovered/Resolved]
  - Urticaria [Recovered/Resolved]
  - Hypersensitivity [Recovered/Resolved]
  - Diarrhoea [Recovered/Resolved]
  - Malaise [Recovered/Resolved]

NARRATIVE: CASE EVENT DATE: 20191021
